FAERS Safety Report 7540929-9 (Version None)
Quarter: 2011Q2

REPORT INFORMATION
  Report Type: 
  Country: None (occurrence: None)
  Receive Date: 20110610
  Receipt Date: 20110608
  Transmission Date: 20111010
  Serious: Yes (Hospitalization, Other)
  Sender: FDA-Public Use
  Company Number: US-PFIZER INC-2010009688

PATIENT
  Sex: Male
  Weight: 68.027 kg

DRUGS (17)
  1. CHANTIX [Suspect]
     Dosage: 1 MG, 2X/DAY
     Route: 048
     Dates: start: 20100101, end: 20100301
  2. METHADONE [Concomitant]
     Indication: PAIN
     Dosage: UNK
  3. OMEPRAZOLE [Concomitant]
     Indication: GASTROOESOPHAGEAL REFLUX DISEASE
     Dosage: UNK
  4. REGLAN [Concomitant]
     Indication: NAUSEA
     Dosage: UNK
  5. PREVACID [Concomitant]
     Indication: GASTROOESOPHAGEAL REFLUX DISEASE
     Dosage: UNK
  6. CHANTIX [Suspect]
     Dosage: UNK
     Route: 048
     Dates: start: 20101101, end: 20101201
  7. PANCREASE [Concomitant]
     Indication: PANCREATITIS
     Dosage: UNK
  8. INSULIN [Concomitant]
     Indication: DIABETES MELLITUS
     Dosage: UNK
  9. ASPIRIN [Concomitant]
     Indication: CARDIAC DISORDER
     Dosage: 81 MG, UNK
  10. ASPIRIN [Concomitant]
     Dosage: UNK
  11. CHANTIX [Suspect]
     Dosage: UNK
     Route: 048
     Dates: start: 20110426, end: 20110101
  12. CHANTIX [Suspect]
     Dosage: 0.5MG, UNK
     Route: 048
     Dates: start: 20110101
  13. XANAX [Concomitant]
     Indication: INSOMNIA
  14. CHANTIX [Suspect]
     Indication: SMOKING CESSATION THERAPY
     Dosage: 0.5 MG, 1X/DAY
     Route: 048
     Dates: start: 20100120, end: 20100101
  15. XANAX [Concomitant]
     Indication: SEDATIVE THERAPY
     Dosage: 1 MG, UNK
     Route: 048
  16. PANCREASE [Concomitant]
     Indication: PANCREATITIS CHRONIC
  17. OMEPRAZOLE [Concomitant]

REACTIONS (11)
  - PANCREATITIS CHRONIC [None]
  - MALAISE [None]
  - BACTERIAL INFECTION [None]
  - STRESS [None]
  - WHITE BLOOD CELL COUNT INCREASED [None]
  - WOUND [None]
  - CHOLECYSTITIS INFECTIVE [None]
  - FLATULENCE [None]
  - ABNORMAL DREAMS [None]
  - ANXIETY [None]
  - DRUG INEFFECTIVE [None]
